FAERS Safety Report 8945491 (Version 1)
Quarter: 2012Q4

REPORT INFORMATION
  Report Type: 
  Country: US (occurrence: US)
  Receive Date: 20121205
  Receipt Date: 20121205
  Transmission Date: 20130627
  Serious: Yes (Hospitalization, Other)
  Sender: FDA-Public Use
  Company Number: US-PFIZER INC-2012304280

PATIENT
  Age: 45 Year
  Sex: Female
  Weight: 90.7 kg

DRUGS (7)
  1. ZOLOFT [Suspect]
     Indication: DEPRESSION
     Dosage: UNK
     Dates: start: 1996, end: 1996
  2. CLONAZEPAM [Suspect]
     Dosage: UNK
  3. GEMFIBROZIL [Suspect]
     Dosage: 600 mg, 1x/day
  4. GEMFIBROZIL [Suspect]
     Dosage: 600 mg, 2x/day
  5. LITHIUM [Concomitant]
     Dosage: 450 mg, 2x/day
  6. LORAZEPAM [Concomitant]
     Dosage: 1 mg, 1x/day
  7. SEROQUEL [Concomitant]
     Dosage: 100 mg, 1x/day

REACTIONS (5)
  - Suicidal ideation [Unknown]
  - Aggression [Unknown]
  - Mania [Unknown]
  - Somnolence [Unknown]
  - Sedation [Unknown]
